FAERS Safety Report 16263262 (Version 3)
Quarter: 2019Q2

REPORT INFORMATION
  Report Type: Spontaneous
  Country: US (occurrence: US)
  Receive Date: 20190502
  Receipt Date: 20190509
  Transmission Date: 20190711
  Serious: No
  Sender: FDA-Public Use
  Company Number: US-SA-2019SA119656

PATIENT
  Age: 49 Year
  Sex: Male

DRUGS (16)
  1. CARVEDILOL. [Concomitant]
     Active Substance: CARVEDILOL
     Dosage: UNK UNK, UNK
  2. ALIROCUMAB [Suspect]
     Active Substance: ALIROCUMAB
     Dosage: UNK, UNK
  3. NEXIUM [Concomitant]
     Active Substance: ESOMEPRAZOLE MAGNESIUM
     Dosage: UNK UNK, UNK
  4. LOVAZA [Concomitant]
     Active Substance: OMEGA-3-ACID ETHYL ESTERS
     Dosage: UNK, UNK
  5. DIGESTIVE ENZYMES [AMYLASE;CELLULASE;LIPASE;MALTASE;PROTEASE;SUCRASE;T [Concomitant]
     Dosage: UNK, UNK
  6. ECOTRIN [Concomitant]
     Active Substance: ASPIRIN
     Dosage: UNK, UNK
  7. TEMAZEPAM. [Concomitant]
     Active Substance: TEMAZEPAM
  8. VITAMIN D3 [Concomitant]
     Active Substance: CHOLECALCIFEROL
     Dosage: UNK, UNK
  9. VITAMIN C [Concomitant]
     Active Substance: ASCORBIC ACID
     Dosage: UNK, UNK
  10. PRAVASTATIN. [Concomitant]
     Active Substance: PRAVASTATIN
     Dosage: UNK UNK, UNK
  11. COENZYME Q10 [Concomitant]
     Active Substance: UBIDECARENONE
     Dosage: UNK, UNK
  12. VALSARTAN. [Concomitant]
     Active Substance: VALSARTAN
     Dosage: UNK, UNK
  13. FUROSEMIDE. [Concomitant]
     Active Substance: FUROSEMIDE
     Dosage: UNK, UNK
  14. MAGNESUM [ALUMINIUM HYDROXIDE GEL, DRIED;DIMETICONE;MAGNESIUM HYDROXID [Concomitant]
     Dosage: UNK, UNK
  15. MULTIVITAMINS WITH MINERALS [ASCORBIC ACID;CALCIUM PANTOTHENATE;CYANOC [Concomitant]
     Dosage: UNK, UNK
  16. METOLAZONE. [Concomitant]
     Active Substance: METOLAZONE
     Dosage: UNK, UNK

REACTIONS (1)
  - Chest pain [Recovered/Resolved]

NARRATIVE: CASE EVENT DATE: 20190328
